FAERS Safety Report 4413046-4 (Version None)
Quarter: 2004Q3

REPORT INFORMATION
  Report Type: 
  Country: None (occurrence: None)
  Receive Date: 20040802
  Receipt Date: 20040618
  Transmission Date: 20050211
  Serious: Yes (Other)
  Sender: FDA-Public Use
  Company Number: PHBS2004JP08148

PATIENT
  Age: 13 Year
  Sex: Female
  Weight: 41 kg

DRUGS (2)
  1. ZADITEN [Suspect]
     Indication: URTICARIA
     Dosage: 2 MG/DAY
     Route: 048
     Dates: start: 20040611, end: 20040612
  2. ALIMEZINE [Concomitant]
     Route: 048
     Dates: start: 20040612, end: 20040612

REACTIONS (9)
  - CONVULSION [None]
  - DEPRESSED LEVEL OF CONSCIOUSNESS [None]
  - ELECTROENCEPHALOGRAM ABNORMAL [None]
  - FALL [None]
  - GRAND MAL CONVULSION [None]
  - GRIP STRENGTH DECREASED [None]
  - HYPERREFLEXIA [None]
  - POSTICTAL PARALYSIS [None]
  - SOMNOLENCE [None]
